FAERS Safety Report 8933740 (Version 2)
Quarter: 2012Q4

REPORT INFORMATION
  Report Type: 
  Country: US (occurrence: US)
  Receive Date: 20121129
  Receipt Date: 20121224
  Transmission Date: 20130627
  Serious: Yes (Other)
  Sender: FDA-Public Use
  Company Number: US-ELI_LILLY_AND_COMPANY-US201211005748

PATIENT
  Sex: Female
  Weight: 81.18 kg

DRUGS (12)
  1. BYDUREON [Suspect]
     Indication: TYPE 2 DIABETES MELLITUS
     Dosage: 2 mg, weekly (1/W)
     Route: 058
     Dates: start: 20121018
  2. BYDUREON [Suspect]
     Dosage: 2 mg, weekly (1/W)
     Route: 058
     Dates: start: 201210
  3. BYETTA [Suspect]
     Indication: TYPE 2 DIABETES MELLITUS
     Dosage: 5 ug, bid
     Route: 058
     Dates: start: 2010
  4. BYETTA [Suspect]
     Dosage: 10 ug, bid
     Route: 058
  5. BYETTA [Suspect]
     Dosage: 10 ug, bid
     Route: 058
  6. METFORMIN [Concomitant]
     Indication: TYPE 2 DIABETES MELLITUS
     Dosage: 500 mg, each morning
     Dates: end: 20121112
  7. METFORMIN [Concomitant]
     Dosage: 1000 mg, each evening
     Dates: end: 20121112
  8. METFORMIN [Concomitant]
     Dosage: 500 mg, bid
     Route: 048
  9. METFORMIN [Concomitant]
     Dosage: 1000 mg, bid
  10. SYNTHROID [Concomitant]
     Indication: HYPOTHYROIDISM
     Dosage: 112 ug, qd
     Route: 048
  11. LEXAPRO [Concomitant]
     Indication: FIBROMYALGIA
     Dosage: 10 mg, qd
     Route: 048
  12. CRESTOR [Suspect]
     Dosage: 20 mg, qd

REACTIONS (12)
  - Sciatica [Recovered/Resolved]
  - Abasia [Recovered/Resolved]
  - Dysstasia [Recovered/Resolved]
  - Injection site nodule [Not Recovered/Not Resolved]
  - Injection site induration [Recovered/Resolved]
  - Blood glucose increased [Recovered/Resolved]
  - Scar [Not Recovered/Not Resolved]
  - Fatigue [Unknown]
  - Injection site hypertrophy [Not Recovered/Not Resolved]
  - Injection site discolouration [Not Recovered/Not Resolved]
  - Injection site pain [Not Recovered/Not Resolved]
  - Asthenia [Unknown]
